FAERS Safety Report 7941865-6 (Version None)
Quarter: 2011Q4

REPORT INFORMATION
  Report Type: 
  Country: None (occurrence: None)
  Receive Date: 20111128
  Receipt Date: 20111122
  Transmission Date: 20120403
  Serious: Yes (Death)
  Sender: FDA-Public Use
  Company Number: SK-BAYER-2011-109344

PATIENT
  Age: 82 Year
  Sex: Male
  Weight: 62 kg

DRUGS (2)
  1. SORAFENIB (RAF KINASE INHIBITOR) [Suspect]
     Indication: HEPATIC NEOPLASM MALIGNANT
     Dosage: DAILY DOSE 800 MG
     Route: 048
     Dates: start: 20100708, end: 20100920
  2. SORAFENIB (RAF KINASE INHIBITOR) [Suspect]
     Dosage: DAILY DOSE 400 MG
     Route: 048
     Dates: start: 20100930, end: 20110327

REACTIONS (1)
  - HEPATIC FAILURE [None]
